FAERS Safety Report 21610618 (Version 1)
Quarter: 2022Q4

REPORT INFORMATION
  Report Type: Spontaneous
  Country: DE (occurrence: DE)
  Receive Date: 20221117
  Receipt Date: 20221117
  Transmission Date: 20230113
  Serious: Yes (Death, Hospitalization)
  Sender: FDA-Public Use
  Company Number: DE-ASTELLAS-2022US024887

PATIENT
  Age: 77 Year
  Sex: Female
  Weight: 93 kg

DRUGS (11)
  1. HYDROMORPHONE HYDROCHLORIDE [Suspect]
     Active Substance: HYDROMORPHONE HYDROCHLORIDE
     Indication: Product used for unknown indication
     Dosage: 6 MILLIGRAM
     Route: 065
     Dates: start: 20220517
  2. HYDROMORPHONE HYDROCHLORIDE [Suspect]
     Active Substance: HYDROMORPHONE HYDROCHLORIDE
     Dosage: 2 MILLIGRAM, DAILY
     Route: 065
     Dates: start: 20220516, end: 20220516
  3. ENFORTUMAB VEDOTIN [Suspect]
     Active Substance: ENFORTUMAB VEDOTIN
     Indication: Transitional cell cancer of the renal pelvis and ureter
     Dosage: DOSAGE REGIMEN 1.25MG/KG KG; INTRAVENOUS INFUSION FOR OVER 30 MIN
     Route: 065
     Dates: start: 20220325, end: 20220506
  4. PREDNISOLONE [Concomitant]
     Active Substance: PREDNISOLONE
     Indication: Product used for unknown indication
     Dosage: 20 MG, ONCE DAILY (1 TABLET, AT OR AFTER THE MEAL)
  5. DURAGESIC [Concomitant]
     Active Substance: FENTANYL
     Indication: Product used for unknown indication
     Dosage: 2.1 MG, (CHANGE EVERY 3D,SHOWER WITH PLASTER POSSIBLE,WASH HANDS AFTER APPLYING/REMOVING,DO NOT CUT)
     Dates: end: 20220508
  6. ZOFRAN [Concomitant]
     Active Substance: ONDANSETRON HYDROCHLORIDE
     Indication: Product used for unknown indication
     Dosage: 8 MG, UNKNOWN FREQ. (DISSOLVE ON TONGUE AND SWALLOW)
  7. VALSARTAN [Concomitant]
     Active Substance: VALSARTAN
     Indication: Product used for unknown indication
     Dosage: 320 MG, ONCE DAILY (80 MG X 4 TABLETS, IN MORNING)
  8. TORSEMIDE [Concomitant]
     Active Substance: TORSEMIDE
     Indication: Product used for unknown indication
     Dosage: 10 MG, TWICE DAILY  (1 IN MORNING AND 1 IN EVENING)
  9. LEVOTHYROXINE [Concomitant]
     Active Substance: LEVOTHYROXINE
     Indication: Product used for unknown indication
     Dosage: 100 ?G, ONCE DAILY (30 MIN BEFORE BREAKFAST)(IRREGULAR INTAKE)
  10. LEVOTHYROXINE [Concomitant]
     Active Substance: LEVOTHYROXINE
     Dosage: 75 ?G, ONCE DAILY (30 MIN BEFORE BREAKFAST)(IRREGULAR INTAKE)
  11. ELIQUIS [Concomitant]
     Active Substance: APIXABAN
     Indication: Product used for unknown indication
     Dosage: 2.5 MG, TWICE DAILY (1 MORNING, 1 EVENING)(DISCONTINUE USE AT LEAST 24 H BEFORE SURGERY)

REACTIONS (7)
  - Immune-mediated lung disease [Fatal]
  - Neutropenia [Recovered/Resolved]
  - Dermatitis bullous [Recovering/Resolving]
  - Atypical pneumonia [Unknown]
  - Dysphagia [Not Recovered/Not Resolved]
  - Nausea [Not Recovered/Not Resolved]
  - Off label use [Unknown]

NARRATIVE: CASE EVENT DATE: 20220413
